FAERS Safety Report 25807270 (Version 1)
Quarter: 2025Q3

REPORT INFORMATION
  Report Type: Spontaneous
  Country: US (occurrence: None)
  Receive Date: 20250915
  Receipt Date: 20250915
  Transmission Date: 20251021
  Serious: Yes (Other)
  Sender: FDA-CTU
  Company Number: None

PATIENT
  Age: 66 Year
  Sex: Male

DRUGS (5)
  1. ERIVEDGE [Suspect]
     Active Substance: VISMODEGIB
     Indication: Basal cell carcinoma
     Dosage: FREQUENCY : DAILY;?
     Route: 048
     Dates: start: 20240503
  2. DULOXETINE [Concomitant]
     Active Substance: DULOXETINE
  3. L-CARNITINE 500MG CAPSULES [Concomitant]
  4. CALCIUM 600MG TABLETS [Concomitant]
  5. VITAMIN D3 1000UNIT CAPSULES [Concomitant]

REACTIONS (1)
  - Hospice care [None]

NARRATIVE: CASE EVENT DATE: 20250915
